FAERS Safety Report 5918583-9 (Version None)
Quarter: 2008Q4

REPORT INFORMATION
  Report Type: 
  Country: None (occurrence: None)
  Receive Date: 20081014
  Receipt Date: 20081014
  Transmission Date: 20090506
  Serious: Yes (Other)
  Sender: FDA-Public Use
  Company Number: None

PATIENT
  Sex: Female
  Weight: 17.2367 kg

DRUGS (1)
  1. ZITHROMAX [Suspect]
     Indication: BRONCHITIS
     Dosage: 5ML ONCE PER DAY PO
     Route: 048
     Dates: start: 20080929, end: 20081003

REACTIONS (1)
  - DEAFNESS [None]
